FAERS Safety Report 4764724-9 (Version None)
Quarter: 2005Q3

REPORT INFORMATION
  Report Type: 
  Country: None (occurrence: None)
  Receive Date: 20050909
  Receipt Date: 20050826
  Transmission Date: 20060218
  Serious: Yes (Death, Hospitalization)
  Sender: FDA-Public Use
  Company Number: CA-AMGEN-US148102

PATIENT
  Sex: Male

DRUGS (5)
  1. ENBREL [Suspect]
     Indication: RHEUMATOID ARTHRITIS
     Route: 058
     Dates: start: 20031031, end: 20050815
  2. PREDNISONE TAB [Suspect]
  3. PRINIVIL [Concomitant]
  4. ACTONEL [Concomitant]
  5. LASIX [Concomitant]

REACTIONS (8)
  - CELLULITIS [None]
  - DRUG ABUSER [None]
  - NECK PAIN [None]
  - OSTEOMYELITIS [None]
  - OVERDOSE [None]
  - PANCYTOPENIA [None]
  - RESPIRATORY FAILURE [None]
  - SEPSIS [None]
